FAERS Safety Report 15939094 (Version 1)
Quarter: 2019Q1

REPORT INFORMATION
  Report Type: Spontaneous
  Country: US (occurrence: US)
  Receive Date: 20190208
  Receipt Date: 20190208
  Transmission Date: 20190417
  Serious: No
  Sender: FDA-Public Use
  Company Number: US-PFIZER INC-2019058763

PATIENT
  Age: 19 Year
  Sex: Female

DRUGS (1)
  1. XELJANZ [Suspect]
     Active Substance: TOFACITINIB CITRATE
     Dosage: 10 MG, UNK
     Dates: start: 20190108

REACTIONS (2)
  - Nasopharyngitis [Recovering/Resolving]
  - Cough [Recovering/Resolving]

NARRATIVE: CASE EVENT DATE: 20190130
